FAERS Safety Report 5906137-X (Version None)
Quarter: 2008Q4

REPORT INFORMATION
  Report Type: 
  Country: None (occurrence: None)
  Receive Date: 20081002
  Receipt Date: 20080929
  Transmission Date: 20090506
  Serious: Yes (Death, Other)
  Sender: FDA-Public Use
  Company Number: PHBS2008ES05863

PATIENT
  Age: 61 Year
  Sex: Male

DRUGS (4)
  1. BASILIXIMAB [Suspect]
     Indication: HEART TRANSPLANT
  2. SIROLIMUS [Suspect]
     Indication: HEART TRANSPLANT
  3. AZATHIOPRINE [Suspect]
     Indication: HEART TRANSPLANT
  4. STEROIDS NOS [Suspect]
     Indication: HEART TRANSPLANT

REACTIONS (3)
  - CACHEXIA [None]
  - MOBILITY DECREASED [None]
  - PULMONARY EMBOLISM [None]
